FAERS Safety Report 7701891-9 (Version None)
Quarter: 2011Q3

REPORT INFORMATION
  Report Type: 
  Country: None (occurrence: None)
  Receive Date: 20110822
  Receipt Date: 20110818
  Transmission Date: 20111222
  Serious: Yes (Other)
  Sender: FDA-Public Use
  Company Number: CHPA2007US03231

PATIENT
  Age: 59 Year
  Sex: Female
  Weight: 52.154 kg

DRUGS (4)
  1. TRANSDERM SCOP [Suspect]
     Indication: MOTION SICKNESS
     Dosage: 1.5 MG, CHANGED THE PATCH ONCE AFTER 2 DAYS
     Route: 062
     Dates: start: 20061118, end: 20061125
  2. ANTIHYPERTENSIVE DRUGS [Concomitant]
     Indication: HYPERTENSION
     Dosage: UNK, UNK
  3. CHOLESTEROL- AND TRIGLYCERIDE REDUCERS [Concomitant]
     Indication: HYPERCHOLESTEROLAEMIA
     Dosage: UNK, UNK
  4. DRUG THERAPY NOS [Concomitant]
     Indication: THYROID DISORDER
     Dosage: UNK, UNK

REACTIONS (5)
  - FATIGUE [None]
  - CONFUSIONAL STATE [None]
  - AMNESIA [None]
  - SPEECH DISORDER [None]
  - VISION BLURRED [None]
